FAERS Safety Report 14705376 (Version 1)
Quarter: 2018Q2

REPORT INFORMATION
  Report Type: Spontaneous
  Country: US (occurrence: US)
  Receive Date: 20180402
  Receipt Date: 20180402
  Transmission Date: 20180711
  Serious: Yes (Other)
  Sender: FDA-Public Use
  Company Number: US-MYLANLABS-2018M1020079

PATIENT
  Age: 68 Year
  Sex: Female

DRUGS (1)
  1. ZOLEDRONIC ACID [Suspect]
     Active Substance: ZOLEDRONIC ACID
     Indication: OSTEOPOROSIS
     Dosage: 4MG
     Route: 041

REACTIONS (5)
  - Hyphaema [Recovered/Resolved]
  - Corneal endotheliitis [Recovered/Resolved]
  - Iridocyclitis [Recovered/Resolved]
  - Parophthalmia [Recovered/Resolved]
  - Scleritis [Recovered/Resolved]
